FAERS Safety Report 11199347 (Version 2)
Quarter: 2015Q3

REPORT INFORMATION
  Report Type: Spontaneous
  Country: JP (occurrence: JP)
  Receive Date: 20150618
  Receipt Date: 20150803
  Transmission Date: 20151125
  Serious: Yes (Other)
  Sender: FDA-Public Use
  Company Number: JP-SA-2015SA084168

PATIENT
  Age: 47 Year
  Sex: Female

DRUGS (3)
  1. CARBOPLATIN. [Suspect]
     Active Substance: CARBOPLATIN
     Indication: INVASIVE PAPILLARY BREAST CARCINOMA
     Dosage: AUC 5
     Route: 042
  2. TRASTUZUMAB [Suspect]
     Active Substance: TRASTUZUMAB
     Indication: INVASIVE PAPILLARY BREAST CARCINOMA
     Route: 042
  3. ONETAXOTERE [Suspect]
     Active Substance: DOCETAXEL
     Indication: INVASIVE PAPILLARY BREAST CARCINOMA
     Route: 042

REACTIONS (8)
  - Recall phenomenon [Recovered/Resolved]
  - Breast oedema [Recovered/Resolved]
  - Rash [Recovered/Resolved]
  - Skin ulcer [Recovered/Resolved]
  - Skin lesion [Recovered/Resolved]
  - Skin plaque [Recovered/Resolved]
  - Epidermal necrosis [Recovered/Resolved]
  - Erythema [Recovered/Resolved]
